FAERS Safety Report 18078193 (Version 1)
Quarter: 2020Q3

REPORT INFORMATION
  Report Type: Spontaneous
  Country: US (occurrence: US)
  Receive Date: 20200727
  Receipt Date: 20200727
  Transmission Date: 20201103
  Serious: No
  Sender: FDA-Public Use
  Company Number: US-SEATTLE GENETICS-2020SGN02442

PATIENT
  Age: 66 Year
  Sex: Female

DRUGS (2)
  1. CAPECITABINE. [Suspect]
     Active Substance: CAPECITABINE
     Indication: BREAST CANCER FEMALE
  2. TUKYSA [Suspect]
     Active Substance: TUCATINIB
     Indication: BREAST CANCER FEMALE
     Dosage: UNK
     Dates: start: 20200603

REACTIONS (10)
  - Constipation [Unknown]
  - Blood potassium decreased [Unknown]
  - Brain neoplasm [Unknown]
  - Pain in extremity [Unknown]
  - Skin discolouration [Unknown]
  - Headache [Unknown]
  - Fall [Unknown]
  - Tinnitus [Unknown]
  - Diarrhoea [Unknown]
  - Palmar-plantar erythrodysaesthesia syndrome [Unknown]

NARRATIVE: CASE EVENT DATE: 20200604
